FAERS Safety Report 4662657-X (Version None)
Quarter: 2005Q2

REPORT INFORMATION
  Report Type: 
  Country: None (occurrence: None)
  Receive Date: 20050506
  Receipt Date: 20040504
  Transmission Date: 20051028
  Serious: No
  Sender: FDA-Public Use
  Company Number: 2004UW09012

PATIENT
  Age: 75 Year
  Sex: Female

DRUGS (2)
  1. NEXIUM [Suspect]
     Indication: GASTROOESOPHAGEAL REFLUX DISEASE
  2. CHOLESTYRAMINE [Concomitant]

REACTIONS (3)
  - ABDOMINAL PAIN [None]
  - COLONIC POLYP [None]
  - DIARRHOEA [None]
